FAERS Safety Report 17524430 (Version 2)
Quarter: 2022Q3

REPORT INFORMATION
  Report Type: Spontaneous
  Country: US (occurrence: US)
  Receive Date: 20200311
  Receipt Date: 20220808
  Transmission Date: 20221027
  Serious: Yes (Other)
  Sender: FDA-Public Use
  Company Number: US-SUN PHARMACEUTICAL INDUSTRIES LTD-2020R1-240125

PATIENT
  Age: 58 Year
  Sex: Female

DRUGS (2)
  1. FUROSEMIDE [Suspect]
     Active Substance: FUROSEMIDE
     Indication: Inappropriate antidiuretic hormone secretion
     Dosage: 40 MILLIGRAM, DAILY
     Route: 042
  2. ALBUMIN HUMAN [Suspect]
     Active Substance: ALBUMIN HUMAN
     Indication: Inappropriate antidiuretic hormone secretion
     Dosage: UNK
     Route: 065

REACTIONS (8)
  - Condition aggravated [Unknown]
  - Cachexia [Recovering/Resolving]
  - Hypovolaemia [Recovering/Resolving]
  - Hyponatraemia [Recovering/Resolving]
  - Oedema [Recovering/Resolving]
  - Hypotension [Recovering/Resolving]
  - Breath sounds abnormal [Recovering/Resolving]
  - Abdominal distension [Recovering/Resolving]
